FAERS Safety Report 6283548-7 (Version None)
Quarter: 2009Q3

REPORT INFORMATION
  Report Type: 
  Country: None (occurrence: None)
  Receive Date: 20090722
  Receipt Date: 20090722
  Transmission Date: 20100115
  Serious: No
  Sender: FDA-Public Use
  Company Number: None

PATIENT
  Age: 7 Year
  Sex: Male
  Weight: 22.6799 kg

DRUGS (1)
  1. DEPAKOTE [Suspect]
     Indication: HEADACHE
     Dosage: 1 BID

REACTIONS (2)
  - DYSGEUSIA [None]
  - GASTROINTESTINAL DISORDER [None]
